FAERS Safety Report 9641803 (Version 1)
Quarter: 2013Q4

REPORT INFORMATION
  Report Type: Spontaneous
  Country: GB (occurrence: None)
  Receive Date: 20131021
  Receipt Date: 20131021
  Transmission Date: 20140711
  Serious: Yes (Other)
  Sender: FDA-Public Use
  Company Number: KAD201310-001354

PATIENT
  Age: 59 Year
  Sex: Female

DRUGS (6)
  1. RIBAVIRIN [Suspect]
     Indication: HEPATITIS C
     Route: 048
     Dates: start: 20120724
  2. ATARAX (HYDROXYZINE HYDROCHLORIDE) [Concomitant]
  3. CITALOPRAM [Concomitant]
  4. LOSARTAN [Concomitant]
  5. PEGINTERFERON [Concomitant]
  6. TELAPREVIR [Concomitant]

REACTIONS (4)
  - Dyspnoea exertional [None]
  - Pulmonary fibrosis [None]
  - Cough [None]
  - Oxygen saturation decreased [None]
